FAERS Safety Report 4846075-7 (Version None)
Quarter: 2005Q4

REPORT INFORMATION
  Report Type: 
  Country: None (occurrence: None)
  Receive Date: 20051202
  Receipt Date: 20051202
  Transmission Date: 20060501
  Serious: Yes (Death)
  Sender: FDA-Public Use
  Company Number: None

PATIENT
  Age: 44 Year
  Sex: Male
  Weight: 87.0906 kg

DRUGS (5)
  1. WELLBUTRIN XL [Suspect]
     Indication: DEPRESSION
     Dates: start: 20051021, end: 20051111
  2. WELLBUTRIN XL [Suspect]
     Indication: SEASONAL AFFECTIVE DISORDER
     Dates: start: 20051021, end: 20051111
  3. L-THYROXINE   75 MCG [Suspect]
     Indication: HYPOTHYROIDISM
     Dates: start: 20051025, end: 20051111
  4. MULTI-VITAMIN [Concomitant]
  5. CALCIUM PLUS VITAMIN D [Concomitant]

REACTIONS (2)
  - CARDIAC ARREST [None]
  - SUDDEN DEATH [None]
